FAERS Safety Report 8241114-8 (Version None)
Quarter: 2012Q1

REPORT INFORMATION
  Report Type: 
  Country: None (occurrence: None)
  Receive Date: 20120328
  Receipt Date: 20120324
  Transmission Date: 20120608
  Serious: Yes (Congenital Anomaly)
  Sender: FDA-Public Use
  Company Number: CN-GLAXOSMITHKLINE-B0791181A

PATIENT

DRUGS (1)
  1. LAMIVUDINE [Suspect]
     Indication: HEPATITIS B
     Dosage: .1G PER DAY
     Route: 064
     Dates: start: 20080101

REACTIONS (2)
  - FOETAL MALFORMATION [None]
  - EXPOSURE VIA SEMEN [None]
